FAERS Safety Report 4964164-3 (Version None)
Quarter: 2006Q1

REPORT INFORMATION
  Report Type: 
  Country: None (occurrence: None)
  Receive Date: 20060331
  Receipt Date: 20060315
  Transmission Date: 20060701
  Serious: Yes (Other)
  Sender: FDA-Public Use
  Company Number: S06-CAN-01279-01

PATIENT
  Age: 41 Year
  Sex: Female

DRUGS (1)
  1. CIPRALEX (ESCITALOPRAM) [Suspect]
     Dosage: 10 MG QD PO
     Route: 048

REACTIONS (9)
  - DIARRHOEA [None]
  - DIZZINESS [None]
  - DYSAESTHESIA [None]
  - FEELING HOT AND COLD [None]
  - INSOMNIA [None]
  - MUSCULOSKELETAL STIFFNESS [None]
  - NAUSEA [None]
  - TACHYCARDIA [None]
  - VOMITING [None]
